FAERS Safety Report 6107465-8 (Version None)
Quarter: 2009Q1

REPORT INFORMATION
  Report Type: 
  Country: None (occurrence: None)
  Receive Date: 20090309
  Receipt Date: 20090225
  Transmission Date: 20090719
  Serious: Yes (Hospitalization)
  Sender: FDA-Public Use
  Company Number: US-PFIZER INC-2007096295

PATIENT
  Sex: Male
  Weight: 72 kg

DRUGS (20)
  1. SUNITINIB MALATE [Suspect]
     Indication: MALIGNANT NEOPLASM OF AMPULLA OF VATER
     Dosage: 25 MG, DAILY, TDD 25 MG
     Route: 048
     Dates: start: 20070829, end: 20071030
  2. ASPIRIN [Concomitant]
     Route: 048
     Dates: start: 20071001
  3. HYDROCHLOROTHIAZIDE [Concomitant]
     Route: 048
     Dates: start: 20041101
  4. LISINOPRIL [Concomitant]
     Route: 048
     Dates: start: 20041101
  5. VITAMIN B-12 [Concomitant]
     Route: 048
     Dates: start: 20070401
  6. ACETAMINOPHEN AND HYDROCODONE BITARTRATE [Concomitant]
     Route: 048
     Dates: start: 20070401
  7. ASPIRIN [Concomitant]
     Route: 048
     Dates: start: 20050601
  8. FERROUS SULFATE TAB [Concomitant]
     Route: 048
     Dates: start: 20070401
  9. DOCUSATE SODIUM [Concomitant]
     Route: 048
     Dates: start: 20070301
  10. ATIVAN [Concomitant]
     Route: 048
     Dates: start: 20070701
  11. FLUOROURACIL [Concomitant]
     Route: 042
     Dates: start: 20070829
  12. LEUCOVORIN CALCIUM [Concomitant]
     Route: 042
     Dates: start: 20070829
  13. DEXAMETHASONE [Concomitant]
     Route: 042
     Dates: start: 20070829
  14. DOLASETRON [Concomitant]
     Route: 042
     Dates: start: 20070829
  15. OXALIPLATIN [Concomitant]
     Route: 042
     Dates: start: 20071010
  16. TYLENOL W/ CODEINE [Concomitant]
     Route: 048
     Dates: start: 20071009
  17. OMEPRAZOLE [Concomitant]
     Route: 048
     Dates: start: 20071010
  18. SENNA [Concomitant]
     Route: 048
     Dates: start: 20071003
  19. METOCLOPRAMIDE HYDROCHLORIDE [Concomitant]
     Route: 048
     Dates: start: 20040401
  20. OXYCODONE HCL [Concomitant]
     Route: 048
     Dates: start: 20071001

REACTIONS (1)
  - ENTEROCUTANEOUS FISTULA [None]
